FAERS Safety Report 17197434 (Version 1)
Quarter: 2019Q4

REPORT INFORMATION
  Report Type: Spontaneous
  Country: BR (occurrence: BR)
  Receive Date: 20191224
  Receipt Date: 20191224
  Transmission Date: 20200122
  Serious: Yes (Other)
  Sender: FDA-Public Use
  Company Number: NVSC2019BR077592

PATIENT
  Sex: Female

DRUGS (6)
  1. BECLOMETASONE DIPROPIONATE [Suspect]
     Active Substance: BECLOMETHASONE DIPROPIONATE
     Indication: PRODUCT USED FOR UNKNOWN INDICATION
     Dosage: UNK
     Route: 065
  2. PLASIL [Suspect]
     Active Substance: METOCLOPRAMIDE HYDROCHLORIDE
     Indication: PRODUCT USED FOR UNKNOWN INDICATION
     Dosage: UNK
     Route: 065
  3. RILAN [CROMOGLICATE SODIUM] [Suspect]
     Active Substance: CROMOLYN SODIUM
     Indication: PRODUCT USED FOR UNKNOWN INDICATION
     Dosage: UNK
     Route: 065
  4. AZITHROMYCIN ANHYDROUS. [Suspect]
     Active Substance: AZITHROMYCIN ANHYDROUS
     Indication: INFLUENZA
     Dosage: UNK
     Route: 065
  5. CLENIL [Suspect]
     Active Substance: BECLOMETHASONE DIPROPIONATE
     Indication: PRODUCT USED FOR UNKNOWN INDICATION
     Dosage: UNK (STRENGTH: 200)
     Route: 065
     Dates: start: 201908
  6. CLENIL [Suspect]
     Active Substance: BECLOMETHASONE DIPROPIONATE
     Dosage: UNK (STRENGTH: 50)
     Route: 065

REACTIONS (29)
  - Cystitis [Unknown]
  - Head discomfort [Unknown]
  - Myalgia [Unknown]
  - Hypertension [Unknown]
  - Extrapyramidal disorder [Unknown]
  - Musculoskeletal chest pain [Unknown]
  - Wheezing [Unknown]
  - Musculoskeletal discomfort [Unknown]
  - Reflux gastritis [Unknown]
  - Dysphagia [Unknown]
  - Ear pain [Unknown]
  - Sinusitis [Unknown]
  - Blood pressure fluctuation [Unknown]
  - Procedural pain [Unknown]
  - Constipation [Unknown]
  - Dyspnoea [Unknown]
  - Poisoning [Unknown]
  - Thirst [Unknown]
  - Spinal pain [Unknown]
  - Musculoskeletal pain [Unknown]
  - Confusional state [Unknown]
  - Fatigue [Unknown]
  - Anxiety [Unknown]
  - Nervousness [Unknown]
  - Malaise [Unknown]
  - Infection [Unknown]
  - Tinnitus [Unknown]
  - Dizziness [Unknown]
  - Abdominal pain upper [Unknown]

NARRATIVE: CASE EVENT DATE: 2019
